FAERS Safety Report 4479757-X (Version None)
Quarter: 2004Q3

REPORT INFORMATION
  Report Type: 
  Country: None (occurrence: None)
  Receive Date: 20040923
  Receipt Date: 20040714
  Transmission Date: 20050211
  Serious: No
  Sender: FDA-Public Use
  Company Number: USA040361514

PATIENT
  Age: 76 Year
  Sex: Female
  Weight: 51 kg

DRUGS (4)
  1. FORTEO [Suspect]
     Indication: OSTEOPOROSIS
     Dosage: 20 UG DAY
     Dates: start: 20030301
  2. DETROL LA (TOLTERODINE L-TARTRATE) [Concomitant]
  3. ASACOL [Concomitant]
  4. PURINETHOL [Concomitant]

REACTIONS (7)
  - ARTHRALGIA [None]
  - BUTTOCK PAIN [None]
  - FALL [None]
  - HEAD INJURY [None]
  - INJECTION SITE HAEMORRHAGE [None]
  - LIMB DISCOMFORT [None]
  - PAIN IN EXTREMITY [None]
